APPROVED DRUG PRODUCT: AUGMENTIN '125'
Active Ingredient: AMOXICILLIN; CLAVULANATE POTASSIUM
Strength: 125MG;EQ 31.25MG BASE **Federal Register determination that product was not discontinued or withdrawn for safety or effectiveness reasons**
Dosage Form/Route: TABLET, CHEWABLE;ORAL
Application: N050597 | Product #001
Applicant: US ANTIBIOTICS LLC
Approved: Jul 22, 1985 | RLD: Yes | RS: No | Type: DISCN